FAERS Safety Report 6634118-X (Version None)
Quarter: 2010Q1

REPORT INFORMATION
  Report Type: 
  Country: None (occurrence: None)
  Receive Date: 20100315
  Receipt Date: 20100308
  Transmission Date: 20100710
  Serious: Yes (Other)
  Sender: FDA-Public Use
  Company Number: US-BRISTOL-MYERS SQUIBB COMPANY-15010473

PATIENT
  Age: 53 Year
  Sex: Male

DRUGS (7)
  1. REYATAZ [Suspect]
     Indication: HIV INFECTION
  2. EPIVIR [Concomitant]
  3. ZIAGEN [Concomitant]
  4. TESTOSTERONE [Concomitant]
  5. ASPIRIN [Concomitant]
  6. LOVAZA [Concomitant]
  7. VIAGRA [Concomitant]

REACTIONS (1)
  - RENAL TUBULAR NECROSIS [None]
